FAERS Safety Report 7812812-2 (Version None)
Quarter: 2011Q4

REPORT INFORMATION
  Report Type: 
  Country: None (occurrence: None)
  Receive Date: 20111013
  Receipt Date: 20111006
  Transmission Date: 20120403
  Serious: Yes (Death, Life-Threatening, Hospitalization)
  Sender: FDA-Public Use
  Company Number: US-ABBOTT-11P-163-0857316-00

PATIENT
  Sex: Male
  Weight: 93.07 kg

DRUGS (2)
  1. HUMIRA [Suspect]
     Indication: PSORIASIS
     Route: 058
     Dates: start: 20090223, end: 20090223
  2. HUMIRA [Suspect]
     Route: 058
     Dates: end: 20100701

REACTIONS (3)
  - MYOCARDIAL FIBROSIS [None]
  - ARRHYTHMIA [None]
  - CELLULITIS [None]
